FAERS Safety Report 8072374-4 (Version None)
Quarter: 2011Q4

REPORT INFORMATION
  Report Type: 
  Country: None (occurrence: None)
  Receive Date: 20111222
  Receipt Date: 20111024
  Transmission Date: 20120403
  Serious: Yes (Hospitalization)
  Sender: FDA-Public Use
  Company Number: UTC-011553

PATIENT
  Age: 52 Year
  Sex: Female

DRUGS (1)
  1. TYVASO [Suspect]

REACTIONS (1)
  - FOOT OPERATION [None]
